FAERS Safety Report 14479367 (Version 1)
Quarter: 2018Q1

REPORT INFORMATION
  Report Type: Spontaneous
  Country: ES (occurrence: ES)
  Receive Date: 20180202
  Receipt Date: 20180202
  Transmission Date: 20180509
  Serious: Yes (Hospitalization, Other)
  Sender: FDA-Public Use
  Company Number: ES-IROKO PHARMACEUTICALS LLC-ES-I09001-18-00007

PATIENT
  Age: 32 Year
  Sex: Female

DRUGS (5)
  1. PROGESTERON [Concomitant]
     Active Substance: PROGESTERONE
     Indication: TOCOLYSIS
     Route: 067
  2. ATOSIBAN [Concomitant]
     Active Substance: ATOSIBAN
     Indication: TOCOLYSIS
     Route: 042
  3. INDOMETHACIN AMBIGUOUS [Suspect]
     Active Substance: INDOMETHACIN
     Indication: TOCOLYSIS
     Route: 054
  4. MAGNESIUM SULPHATE [Concomitant]
     Active Substance: MAGNESIUM SULFATE
     Indication: PROPHYLAXIS
  5. MAGNESIUM SULPHATE [Concomitant]
     Active Substance: MAGNESIUM SULFATE
     Indication: NERVOUS SYSTEM DISORDER
     Route: 065

REACTIONS (6)
  - Sacroiliitis [Unknown]
  - Pre-eclampsia [Recovering/Resolving]
  - Off label use [Unknown]
  - Premature delivery [Unknown]
  - Cranial nerve paralysis [Recovering/Resolving]
  - Exposure during pregnancy [Recovered/Resolved]
